FAERS Safety Report 5889985-4 (Version None)
Quarter: 2008Q3

REPORT INFORMATION
  Report Type: 
  Country: None (occurrence: None)
  Receive Date: 20080919
  Receipt Date: 20080908
  Transmission Date: 20090109
  Serious: Yes (Other)
  Sender: FDA-Public Use
  Company Number: US-PFIZER INC-2008003786

PATIENT
  Sex: Female

DRUGS (1)
  1. CHANTIX [Suspect]
     Indication: SMOKING CESSATION THERAPY

REACTIONS (7)
  - BRONCHITIS [None]
  - FLATULENCE [None]
  - INTERVERTEBRAL DISC OPERATION [None]
  - MEDICATION ERROR [None]
  - NAUSEA [None]
  - NEUROPATHY PERIPHERAL [None]
  - UNEVALUABLE EVENT [None]
